FAERS Safety Report 23026258 (Version 1)
Quarter: 2023Q4

REPORT INFORMATION
  Report Type: Spontaneous
  Country: US (occurrence: US)
  Receive Date: 20231004
  Receipt Date: 20231004
  Transmission Date: 20240110
  Serious: Yes (Other)
  Sender: FDA-Public Use
  Company Number: US-BIOCODEX2-2023001116

PATIENT
  Age: 3 Year
  Sex: Male
  Weight: 15.1 kg

DRUGS (5)
  1. DIACOMIT [Suspect]
     Active Substance: STIRIPENTOL
     Indication: Lennox-Gastaut syndrome
     Dosage: 250MG BY MOUTH TWICE DAILY
     Route: 048
     Dates: start: 20230729, end: 20230922
  2. CLOBAZAM [Concomitant]
     Active Substance: CLOBAZAM
     Indication: Product used for unknown indication
     Route: 065
  3. DIAZEPAM [Concomitant]
     Active Substance: DIAZEPAM
     Indication: Product used for unknown indication
     Route: 065
  4. KLONOPIN [Concomitant]
     Active Substance: CLONAZEPAM
     Indication: Product used for unknown indication
     Route: 065
  5. FINTEPLA [Concomitant]
     Active Substance: FENFLURAMINE
     Indication: Product used for unknown indication
     Route: 065

REACTIONS (3)
  - Product use in unapproved indication [Unknown]
  - Product preparation issue [Unknown]
  - Change in seizure presentation [Unknown]

NARRATIVE: CASE EVENT DATE: 20230729
